FAERS Safety Report 10407701 (Version 1)
Quarter: 2014Q1

REPORT INFORMATION
  Report Type: Spontaneous
  Country: US (occurrence: None)
  Receive Date: 20140131
  Receipt Date: 20140131
  Transmission Date: 20141002
  Serious: Yes (Other)
  Sender: FDA-Public Use
  Company Number: 093219U

PATIENT
  Age: 24 Year
  Sex: Male
  Weight: 102 kg

DRUGS (1)
  1. KEPPRA [Suspect]
     Indication: PARTIAL SEIZURES
     Route: 048
     Dates: start: 20130519, end: 20130519

REACTIONS (1)
  - Suicidal ideation [None]
